FAERS Safety Report 6402781-4 (Version None)
Quarter: 2009Q4

REPORT INFORMATION
  Report Type: 
  Country: None (occurrence: None)
  Receive Date: 20091016
  Receipt Date: 20070313
  Transmission Date: 20100525
  Serious: Yes (Disabling)
  Sender: FDA-Public Use
  Company Number: US-ASTRAZENECA-2006UW08070

PATIENT
  Sex: Male
  Weight: 97.5 kg

DRUGS (15)
  1. SEROQUEL [Suspect]
     Indication: SLEEP DISORDER
     Dosage: 200 MG-600 MG
     Route: 048
     Dates: start: 20001116
  2. SEROQUEL [Suspect]
     Indication: HALLUCINATION, AUDITORY
     Dosage: 200 MG-600 MG
     Route: 048
     Dates: start: 20001116
  3. SEROQUEL [Suspect]
     Indication: ANXIETY
     Dosage: 200 MG-600 MG
     Route: 048
     Dates: start: 20001116
  4. DESYREL [Concomitant]
     Dates: start: 20020102
  5. GEODON [Concomitant]
     Dates: start: 20040108
  6. PAXIL [Concomitant]
     Dates: start: 20020102
  7. DEPAKOTE [Concomitant]
     Dosage: 250 MG-1500 MG
     Route: 048
     Dates: start: 19910101
  8. RISPERDAL [Concomitant]
     Indication: ANXIETY
     Dosage: 1 MG-3MG
     Route: 048
     Dates: start: 20020102
  9. RISPERDAL [Concomitant]
     Indication: HALLUCINATION, AUDITORY
     Dosage: 1 MG-3MG
     Route: 048
     Dates: start: 20020102
  10. VISTARIL [Concomitant]
     Indication: SLEEP DISORDER
     Dates: start: 20020320
  11. LITHIUM [Concomitant]
     Dosage: 300 MG-1800 MG
     Route: 048
     Dates: start: 19890101
  12. MELLARIL [Concomitant]
     Dosage: 50 MG-150 MG
     Route: 048
     Dates: start: 19920101
  13. REMERON [Concomitant]
     Indication: SLEEP DISORDER
     Dates: start: 20020320
  14. PROZAC [Concomitant]
     Dates: start: 19901115
  15. WELLBUTRIN [Concomitant]
     Dosage: 75 MG-250 MG
     Dates: start: 19910101

REACTIONS (1)
  - ILL-DEFINED DISORDER [None]
